FAERS Safety Report 7953495-0 (Version None)
Quarter: 2011Q4

REPORT INFORMATION
  Report Type: 
  Country: None (occurrence: None)
  Receive Date: 20111202
  Receipt Date: 20111128
  Transmission Date: 20120403
  Serious: Yes (Other)
  Sender: FDA-Public Use
  Company Number: US-PFIZER INC-2011275003

PATIENT
  Sex: Female
  Weight: 70.295 kg

DRUGS (1)
  1. ZOLOFT [Suspect]
     Indication: BIPOLAR DISORDER
     Dosage: 1 MG, 2 TO 3 TIMES IN A DAY AS NEEDED

REACTIONS (4)
  - ABORTION SPONTANEOUS [None]
  - NIGHTMARE [None]
  - NERVOUSNESS [None]
  - MENTAL DISORDER [None]
